FAERS Safety Report 5102534-3 (Version None)
Quarter: 2006Q3

REPORT INFORMATION
  Report Type: 
  Country: None (occurrence: None)
  Receive Date: 20060907
  Receipt Date: 20060828
  Transmission Date: 20061208
  Serious: Yes (Life-Threatening)
  Sender: FDA-Public Use
  Company Number: GXKR2006NL05224

PATIENT
  Age: 33 Year
  Sex: Female
  Weight: 45 kg

DRUGS (31)
  1. FLUCONAZOLE [Suspect]
     Indication: PNEUMONITIS
     Dosage: SEE IMAGEINTRAVENOUS
     Route: 042
  2. DOMPERIDONE (DOMPERIDONE) [Suspect]
     Indication: VOMITING
     Dosage: 180 MG DAILY
  3. AMOXICILLIN + CLAVULANIC ACID (AMOXICILLIN, CLAVULANIC ACID) [Concomitant]
  4. GENTAMICIN [Concomitant]
  5. PREDNISONE TAB [Concomitant]
  6. HEMOFILTRATION (NO INGREDIENTS/SUBSTANCES) [Concomitant]
  7. MAGNESIUM SULFATE [Concomitant]
  8. NON-DRUG: ELECTRIC CARDIOVERSION (NO INGREDIENT/SUBSTANCES) [Concomitant]
  9. PIPERACILLIN W/TAZOBACTAM (PIPERACILLIN, TAZOBACTAM) [Concomitant]
  10. ALPRAZOLAM [Concomitant]
  11. METOPROLOL (METOPROLOL) [Concomitant]
  12. NADROPARIN (NADROPARIN) [Concomitant]
  13. OXAZEPAM [Concomitant]
  14. PANTOPRAZOLE SODIUM [Concomitant]
  15. ACETAMINOPHEN [Concomitant]
  16. POTASSIUM CHLORIDE [Concomitant]
  17. FUROSEMIDE [Concomitant]
  18. PIRITRAMIDE (PIRITRAMIDE) [Concomitant]
  19. IPRATROPIUM BROMIDE [Concomitant]
  20. INSULIN (INSULIN) [Concomitant]
  21. CALCIUM CHLORIDE (CALCIUM CHLORIDE) [Concomitant]
  22. VANCOMYCIN [Concomitant]
  23. TEMAZEPAM [Concomitant]
  24. ALBUTEROL [Concomitant]
  25. LACTULOSE [Concomitant]
  26. MIDAZOLAM HCL [Concomitant]
  27. CITALOPRAM HYDROBROMIDE [Concomitant]
  28. DOXAZOSIN (DOXAZOSIN) [Concomitant]
  29. LOSARTAN POTASSIUM [Concomitant]
  30. FELODIOINE (FELODIPINE) [Concomitant]
  31. ACYCLOVIR [Concomitant]

REACTIONS (5)
  - BRADYCARDIA [None]
  - DRUG INTERACTION [None]
  - ELECTROCARDIOGRAM QT PROLONGED [None]
  - RENAL IMPAIRMENT [None]
  - TORSADE DE POINTES [None]
